FAERS Safety Report 7919821-3 (Version None)
Quarter: 2011Q4

REPORT INFORMATION
  Report Type: 
  Country: None (occurrence: None)
  Receive Date: 20111117
  Receipt Date: 20111117
  Transmission Date: 20120403
  Serious: Yes (Hospitalization, Disabling)
  Sender: FDA-Public Use
  Company Number: None

PATIENT
  Age: 20 Year
  Sex: Female

DRUGS (1)
  1. LEXISCAN [Suspect]
     Indication: SINGLE PHOTON EMISSION COMPUTERISED TOMOGRAM
     Dosage: 0.4MG
     Route: 040
     Dates: start: 20111024, end: 20111024

REACTIONS (3)
  - BLEPHAROSPASM [None]
  - UNRESPONSIVE TO STIMULI [None]
  - SOMNOLENCE [None]
